FAERS Safety Report 8078424-3 (Version None)
Quarter: 2012Q1

REPORT INFORMATION
  Report Type: 
  Country: None (occurrence: None)
  Receive Date: 20120123
  Receipt Date: 20120112
  Transmission Date: 20120608
  Serious: Yes (Death)
  Sender: FDA-Public Use
  Company Number: UTC-013670

PATIENT
  Age: 50 Year
  Sex: Female
  Weight: 72.2 kg

DRUGS (4)
  1. TYVASO [Suspect]
     Indication: COR PULMONALE CHRONIC
     Dosage: 18-66 MICROGRAMS (4 IN 1 D),INHALATION
     Route: 055
     Dates: start: 20090908
  2. TRACLEER [Concomitant]
  3. COUMADIN [Concomitant]
  4. DIURETICS (DIURETICS) [Concomitant]

REACTIONS (1)
  - DEATH [None]
